FAERS Safety Report 9552521 (Version 1)
Quarter: 2013Q3

REPORT INFORMATION
  Report Type: Spontaneous
  Country: US (occurrence: None)
  Receive Date: 20130923
  Receipt Date: 20130923
  Transmission Date: 20140515
  Serious: Yes (Hospitalization, Other)
  Sender: FDA-Public Use
  Company Number: ACO_38509_2013

PATIENT
  Age: 39 Year
  Sex: Female
  Weight: 64.4 kg

DRUGS (4)
  1. AMPYRA [Suspect]
     Indication: MULTIPLE SCLEROSIS
     Route: 048
     Dates: start: 20130911, end: 20130912
  2. AMPYRA [Suspect]
     Indication: GAIT DISTURBANCE
     Route: 048
     Dates: start: 20130911, end: 20130912
  3. COPAXONE (GLATIRAMER ACETATE) [Concomitant]
  4. SINGULAIR [Concomitant]

REACTIONS (8)
  - Haematochezia [None]
  - Feeling abnormal [None]
  - Abdominal pain upper [None]
  - Paraesthesia oral [None]
  - Nausea [None]
  - Headache [None]
  - Adverse drug reaction [None]
  - Malaise [None]
